FAERS Safety Report 9503761 (Version 3)
Quarter: 2013Q4

REPORT INFORMATION
  Report Type: Spontaneous
  Country: US (occurrence: None)
  Receive Date: 20130107
  Receipt Date: 20131226
  Transmission Date: 20140711
  Serious: Yes (Other)
  Sender: FDA-Public Use
  Company Number: PHEH2012US020018

PATIENT
  Age: 45 Year
  Sex: Male
  Weight: 70.3 kg

DRUGS (1)
  1. GILENYA [Suspect]
     Indication: MULTIPLE SCLEROSIS
     Route: 048
     Dates: start: 20110328, end: 20130121

REACTIONS (4)
  - Feeling abnormal [None]
  - Multiple sclerosis relapse [None]
  - Gait disturbance [None]
  - Memory impairment [None]
